FAERS Safety Report 7632832-0 (Version None)
Quarter: 2011Q3

REPORT INFORMATION
  Report Type: 
  Country: None (occurrence: None)
  Receive Date: 20110725
  Receipt Date: 20091122
  Transmission Date: 20111222
  Serious: Yes (Death, Hospitalization, Other)
  Sender: FDA-Public Use
  Company Number: US-BAYER-200940155NA

PATIENT
  Age: 61 Year
  Sex: Male
  Weight: 61.224 kg

DRUGS (19)
  1. FRESH FROZEN PLASMA [Concomitant]
     Dosage: 8 U, UNK
     Route: 042
     Dates: start: 20070316
  2. FENTANYL [Concomitant]
     Dosage: UNK
     Route: 042
     Dates: start: 20070316
  3. FENOLDOPAM [Concomitant]
     Dosage: UNK
     Route: 042
     Dates: start: 20070316
  4. ACETYLSALICYLIC ACID SRT [Concomitant]
     Dosage: 81 MG, UNK
     Route: 048
  5. OMEPRAZOLE [Concomitant]
     Route: 048
  6. CARDENE [Concomitant]
     Dosage: UNK
     Route: 042
     Dates: start: 20070316
  7. LIPITOR [Concomitant]
     Dosage: 20MG
     Route: 048
  8. PLAVIX [Concomitant]
     Dosage: 75MG
     Route: 048
     Dates: start: 20050723
  9. VYTORIN [Concomitant]
     Dosage: 10/40MG
     Route: 048
  10. CLONIDINE [Concomitant]
     Dosage: 0.1MG
     Route: 048
  11. TRANEXAMIC ACID [Concomitant]
     Dosage: UNK
     Dates: start: 20070316
  12. ACETYLSALICYLIC ACID SRT [Concomitant]
     Dosage: 81MG
     Route: 048
  13. LASIX [Concomitant]
     Dosage: UNK
     Route: 042
     Dates: start: 20070316
  14. TRASYLOL [Suspect]
     Indication: PRODUCT USED FOR UNKNOWN INDICATION
     Dosage: UNK
     Route: 042
     Dates: start: 20070316
  15. RED BLOOD CELLS [Concomitant]
     Dosage: 5 U, UNK
     Route: 042
     Dates: start: 20070316
  16. PLATELETS [Concomitant]
     Dosage: 6 U, UNK
     Route: 042
     Dates: start: 20070316
  17. PROPOFOL [Concomitant]
     Dosage: UNK
     Route: 042
     Dates: start: 20070316
  18. ANCEF [Concomitant]
     Dosage: UNK
     Route: 042
     Dates: start: 20070316
  19. BENICAR [Concomitant]
     Dosage: 40 MG, UNK
     Route: 048

REACTIONS (13)
  - ANXIETY [None]
  - EMOTIONAL DISTRESS [None]
  - PAIN [None]
  - MULTI-ORGAN FAILURE [None]
  - INJURY [None]
  - STRESS [None]
  - UNEVALUABLE EVENT [None]
  - ANHEDONIA [None]
  - RENAL FAILURE [None]
  - DEATH [None]
  - RENAL IMPAIRMENT [None]
  - RENAL INJURY [None]
  - FEAR [None]
